FAERS Safety Report 16456368 (Version 4)
Quarter: 2021Q2

REPORT INFORMATION
  Report Type: Other
  Country: US (occurrence: US)
  Receive Date: 20190620
  Receipt Date: 20210416
  Transmission Date: 20210716
  Serious: Yes (Hospitalization, Other)
  Sender: FDA-Public Use
  Company Number: US-ROCHE-2334111

PATIENT
  Sex: Male
  Weight: 149.82 kg

DRUGS (14)
  1. BACLOFEN. [Concomitant]
     Active Substance: BACLOFEN
     Indication: MUSCLE SPASMS
     Dosage: ONGOING:YES
  2. BABY ASPIRIN [Concomitant]
     Active Substance: ASPIRIN
  3. LOSARTAN. [Concomitant]
     Active Substance: LOSARTAN
     Dates: start: 2020
  4. BACLOFEN. [Concomitant]
     Active Substance: BACLOFEN
  5. CARVEDILOL. [Concomitant]
     Active Substance: CARVEDILOL
     Indication: HYPERTENSION
  6. METHOCARBAMOL. [Concomitant]
     Active Substance: METHOCARBAMOL
  7. CLOPIDOGREL [Concomitant]
     Active Substance: CLOPIDOGREL BISULFATE
  8. OCREVUS [Suspect]
     Active Substance: OCRELIZUMAB
     Indication: PRIMARY PROGRESSIVE MULTIPLE SCLEROSIS
     Dosage: DATE OF TREATMENT: 07/DEC/2017, 21/DEC/2017, 21/JUN/2018, 21/DEC/2018, 21/JUN/2019, 30/DEC/2019, 06/
     Route: 042
     Dates: start: 20171207
  9. OCREVUS [Suspect]
     Active Substance: OCRELIZUMAB
     Indication: RELAPSING MULTIPLE SCLEROSIS
  10. ASPIRIN. [Concomitant]
     Active Substance: ASPIRIN
  11. LOSARTAN. [Concomitant]
     Active Substance: LOSARTAN
     Indication: HYPERTENSION
  12. VITAMIN B6 [Concomitant]
     Active Substance: PYRIDOXINE HYDROCHLORIDE
     Dosage: SPORADICALLY
  13. ROSUVASTATIN. [Concomitant]
     Active Substance: ROSUVASTATIN
  14. BIOTIN [Concomitant]
     Active Substance: BIOTIN
     Dosage: SPORADICALLY

REACTIONS (18)
  - Asthenia [Not Recovered/Not Resolved]
  - Muscular weakness [Unknown]
  - Incontinence [Unknown]
  - Liver injury [Unknown]
  - Urinary tract infection [Not Recovered/Not Resolved]
  - Illness [Recovered/Resolved]
  - Sepsis [Unknown]
  - Pyrexia [Not Recovered/Not Resolved]
  - Therapeutic response shortened [Unknown]
  - Depression [Unknown]
  - Wound [Recovered/Resolved]
  - Oedema [Unknown]
  - Peripheral swelling [Unknown]
  - Weight increased [Recovering/Resolving]
  - Diarrhoea [Unknown]
  - Cystitis [Recovering/Resolving]
  - Wound infection [Recovered/Resolved]
  - Prostatic disorder [Unknown]

NARRATIVE: CASE EVENT DATE: 2019
